FAERS Safety Report 24257777 (Version 1)
Quarter: 2024Q3

REPORT INFORMATION
  Report Type: Spontaneous
  Country: JP (occurrence: JP)
  Receive Date: 20240828
  Receipt Date: 20240828
  Transmission Date: 20241016
  Serious: Yes (Death, Other)
  Sender: AMGEN
  Company Number: JP-DSJP-DSJ-2024-141167

PATIENT
  Age: 45 Year
  Sex: Male

DRUGS (9)
  1. BEVACIZUMAB [Suspect]
     Active Substance: BEVACIZUMAB
     Indication: Brain stem glioma
     Dosage: 15 MG/M2 ON DAY 1
     Route: 065
  2. BEVACIZUMAB [Suspect]
     Active Substance: BEVACIZUMAB
     Dosage: UNK, REPEATED EVERY 4-6 WEEKS
     Route: 065
  3. BEVACIZUMAB [Suspect]
     Active Substance: BEVACIZUMAB
     Dosage: UNK, ADMINISTERED TWICE
     Route: 065
  4. IFOSFAMIDE [Suspect]
     Active Substance: IFOSFAMIDE
     Indication: Brain stem glioma
     Dosage: 0.75 MG/M2 ON DAYS 1-3
     Route: 065
  5. IFOSFAMIDE [Suspect]
     Active Substance: IFOSFAMIDE
     Dosage: UNK, REPEATED EVERY 4-6 WEEKS
     Route: 065
  6. CARBOPLATIN [Suspect]
     Active Substance: CARBOPLATIN
     Indication: Brain stem glioma
     Dosage: 75 MG/M2 ON DAYS 1-3
     Route: 065
  7. CARBOPLATIN [Suspect]
     Active Substance: CARBOPLATIN
     Dosage: UNK, REPEATED EVERY 4-6 WEEKS
     Route: 065
  8. ETOPOSIDE [Suspect]
     Active Substance: ETOPOSIDE
     Indication: Brain stem glioma
     Dosage: 75 MG/M2 ON DAYS 1-3
     Route: 065
  9. ETOPOSIDE [Suspect]
     Active Substance: ETOPOSIDE
     Dosage: UNK, REPEATED EVERY 4-6 WEEKS
     Route: 065

REACTIONS (5)
  - Metastases to central nervous system [Fatal]
  - Neutropenia [Unknown]
  - Anaemia [Unknown]
  - Urinary tract infection [Unknown]
  - Constipation [Unknown]
